FAERS Safety Report 7735042 (Version 4)
Quarter: 2014Q1

REPORT INFORMATION
  Report Type: Spontaneous
  Country: US (occurrence: US)
  Receive Date: 20101223
  Receipt Date: 20140206
  Transmission Date: 20141002
  Serious: Yes (Other)
  Sender: FDA-Public Use
  Company Number: US-BAYER-2010-003105

PATIENT
  Age: 19 Year
  Sex: Female
  Weight: 68.03 kg

DRUGS (5)
  1. YAZ [Suspect]
     Indication: PRODUCT USED FOR UNKNOWN INDICATION
     Dosage: UNK
     Dates: start: 200803
  2. ALBUTEROL [Concomitant]
  3. ANTIMIGRAINE PREPARATIONS [Concomitant]
  4. VALTREX [Concomitant]
     Dosage: 500 MG, UNK
  5. LOESTRIN FE [Concomitant]

REACTIONS (3)
  - Gallbladder injury [None]
  - Gallbladder disorder [None]
  - Cholecystitis chronic [None]
